FAERS Safety Report 25335571 (Version 1)
Quarter: 2025Q2

REPORT INFORMATION
  Report Type: Report from Study
  Country: US (occurrence: US)
  Receive Date: 20250520
  Receipt Date: 20250520
  Transmission Date: 20250716
  Serious: No
  Sender: TRAVERE THERAPEUTICS
  Company Number: US-TRAVERE-2025TVT00731

PATIENT
  Age: 46 Year
  Sex: Male

DRUGS (4)
  1. FILSPARI [Suspect]
     Active Substance: SPARSENTAN
     Indication: IgA nephropathy
     Route: 048
     Dates: start: 20250315
  2. ALLOPURINOL [Concomitant]
     Active Substance: ALLOPURINOL
  3. FARXIGA [Concomitant]
     Active Substance: DAPAGLIFLOZIN PROPANEDIOL
  4. UNSPECIFIED INGREDIENT [Concomitant]
     Active Substance: UNSPECIFIED INGREDIENT

REACTIONS (13)
  - Blood creatinine increased [Unknown]
  - Blood urea increased [Unknown]
  - Blood chloride increased [Unknown]
  - Carbon dioxide decreased [Unknown]
  - Haemoglobin decreased [Unknown]
  - Urine albumin/creatinine ratio increased [Unknown]
  - Urine analysis abnormal [Unknown]
  - Full blood count decreased [Unknown]
  - Blood albumin decreased [Unknown]
  - Blood bilirubin decreased [Unknown]
  - Alanine aminotransferase increased [Unknown]
  - Glomerular filtration rate decreased [Unknown]
  - Blood uric acid increased [Unknown]

NARRATIVE: CASE EVENT DATE: 20250417
